FAERS Safety Report 9010103 (Version 4)
Quarter: 2017Q1

REPORT INFORMATION
  Report Type: Spontaneous
  Country: US (occurrence: US)
  Receive Date: 20130110
  Receipt Date: 20170202
  Transmission Date: 20170429
  Serious: Yes (Hospitalization, Other)
  Sender: FDA-Public Use
  Company Number: US-009507513-1301USA002303

PATIENT
  Sex: Female

DRUGS (1)
  1. FOSAMAX [Suspect]
     Active Substance: ALENDRONATE SODIUM
     Indication: OSTEOPOROSIS
     Dosage: 35 MG, UNKNOWN
     Route: 048
     Dates: start: 2001, end: 200503

REACTIONS (13)
  - Pain in extremity [Unknown]
  - Fall [Unknown]
  - Arthritis [Unknown]
  - Diverticulum intestinal [Unknown]
  - Wrist fracture [Unknown]
  - Urinary tract infection [Unknown]
  - Fracture nonunion [Unknown]
  - Impaired healing [Unknown]
  - Pain in extremity [Unknown]
  - Decubitus ulcer [Unknown]
  - Pseudarthrosis [Unknown]
  - Femur fracture [Unknown]
  - Femur fracture [Unknown]

NARRATIVE: CASE EVENT DATE: 20101216
